FAERS Safety Report 8413253-X (Version None)
Quarter: 2012Q2

REPORT INFORMATION
  Report Type: 
  Country: None (occurrence: None)
  Receive Date: 20120605
  Receipt Date: 20120530
  Transmission Date: 20120825
  Serious: Yes (Other)
  Sender: FDA-Public Use
  Company Number: JP-PFIZER INC-2012129364

PATIENT
  Sex: Male

DRUGS (2)
  1. CADUET [Suspect]
     Dosage: 5 MG/10 MG, UNK
  2. ASPIRIN [Suspect]
     Dosage: UNK

REACTIONS (2)
  - BLEEDING TIME PROLONGED [None]
  - LACERATION [None]
